FAERS Safety Report 6805588-9 (Version None)
Quarter: 2010Q2

REPORT INFORMATION
  Report Type: 
  Country: None (occurrence: None)
  Receive Date: 20100628
  Receipt Date: 20071226
  Transmission Date: 20101027
  Serious: Yes (Other)
  Sender: FDA-Public Use
  Company Number: US-PFIZER INC-2007107911

PATIENT
  Sex: Female

DRUGS (3)
  1. RELPAX [Suspect]
  2. AXERT [Suspect]
  3. SUMATRIPTAN SUCCINATE (IMITREX) [Suspect]

REACTIONS (3)
  - ARRHYTHMIA [None]
  - CHEST PAIN [None]
  - DRUG INEFFECTIVE [None]
